FAERS Safety Report 6773208-8 (Version None)
Quarter: 2010Q2

REPORT INFORMATION
  Report Type: 
  Country: None (occurrence: None)
  Receive Date: 20100616
  Receipt Date: 20100607
  Transmission Date: 20101027
  Serious: Yes (Other)
  Sender: FDA-Public Use
  Company Number: PHHY2010US20083

PATIENT
  Sex: Female

DRUGS (1)
  1. NEORAL [Suspect]
     Indication: RENAL TRANSPLANT
     Dosage: UNK

REACTIONS (4)
  - DIVERTICULITIS [None]
  - OEDEMA PERIPHERAL [None]
  - PANCREATITIS [None]
  - PROTEINURIA [None]
